FAERS Safety Report 19288938 (Version 11)
Quarter: 2022Q4

REPORT INFORMATION
  Report Type: Report from Study
  Country: BR (occurrence: BR)
  Receive Date: 20210522
  Receipt Date: 20221012
  Transmission Date: 20230112
  Serious: Yes (Other)
  Sender: FDA-Public Use
  Company Number: NVSC2020BR141403

PATIENT
  Age: 58 Year
  Sex: Female
  Weight: 58 kg

DRUGS (27)
  1. COSENTYX [Suspect]
     Active Substance: SECUKINUMAB
     Indication: Psoriatic arthropathy
     Dosage: 150 MG, QMO
     Route: 058
     Dates: start: 201805
  2. COSENTYX [Suspect]
     Active Substance: SECUKINUMAB
     Dosage: 150 MG (1 PER APPLICATION)
     Route: 058
     Dates: start: 20190413, end: 201905
  3. COSENTYX [Suspect]
     Active Substance: SECUKINUMAB
     Dosage: 150 MG, QMO
     Route: 058
     Dates: start: 201905, end: 202005
  4. COSENTYX [Suspect]
     Active Substance: SECUKINUMAB
     Dosage: 300 MG, QMO (2 PENS OF 150 MG)
     Route: 058
     Dates: start: 2019
  5. COSENTYX [Suspect]
     Active Substance: SECUKINUMAB
     Dosage: UNK
     Route: 065
     Dates: start: 20200422
  6. COSENTYX [Suspect]
     Active Substance: SECUKINUMAB
     Dosage: 300 MG, QMO (02 PREFILLEDPEN 150 MG)
     Route: 058
     Dates: start: 202005
  7. COSENTYX [Suspect]
     Active Substance: SECUKINUMAB
     Dosage: 300 MG (2 PER APPLICATION)
     Route: 065
     Dates: start: 202007
  8. COSENTYX [Suspect]
     Active Substance: SECUKINUMAB
     Dosage: UNK
     Route: 065
     Dates: start: 20210426
  9. COSENTYX [Suspect]
     Active Substance: SECUKINUMAB
     Dosage: UNK
     Route: 065
     Dates: start: 20210623
  10. COSENTYX [Suspect]
     Active Substance: SECUKINUMAB
     Dosage: UNK
     Route: 065
     Dates: start: 20220428
  11. COSENTYX [Suspect]
     Active Substance: SECUKINUMAB
     Dosage: UNK
     Route: 065
  12. COSENTYX [Suspect]
     Active Substance: SECUKINUMAB
     Dosage: 300 MG
     Route: 065
  13. COSENTYX [Suspect]
     Active Substance: SECUKINUMAB
     Dosage: UNK
     Route: 065
     Dates: start: 20220531
  14. COSENTYX [Suspect]
     Active Substance: SECUKINUMAB
     Dosage: 1 AMPOULE QW
     Route: 065
  15. COSENTYX [Suspect]
     Active Substance: SECUKINUMAB
     Dosage: (1 AMPOULE),QMO
     Route: 065
  16. COSENTYX [Suspect]
     Active Substance: SECUKINUMAB
     Dosage: (2 AMPOULES),QMO
     Route: 065
  17. COSENTYX [Suspect]
     Active Substance: SECUKINUMAB
     Dosage: 300 MG, QMO (2 PEN)
     Route: 058
     Dates: start: 20220721
  18. COSENTYX [Suspect]
     Active Substance: SECUKINUMAB
     Dosage: UNK (3 YEARS AND HALF AGO)
     Route: 065
  19. ESCITALOPRAM [Suspect]
     Active Substance: ESCITALOPRAM OXALATE
     Indication: Depression
     Dosage: 10 MG, QD
     Route: 048
     Dates: start: 2019
  20. METHOTREXATE [Concomitant]
     Active Substance: METHOTREXATE
     Indication: Psoriasis
     Dosage: 5 DOSAGE FORM
     Route: 048
     Dates: start: 2019
  21. METHOTREXATE [Concomitant]
     Active Substance: METHOTREXATE
     Indication: Psoriatic arthropathy
     Dosage: 6 DOSAGE FORM, QW, STARTED MANY YEARS AGO AND STOPPED TWO YEARS AGO
     Route: 048
  22. FOLIC ACID [Concomitant]
     Active Substance: FOLIC ACID
     Indication: Hypovitaminosis
     Dosage: 1 DOSAGE FORM, BID
     Route: 065
     Dates: start: 2011
  23. FOLIC ACID [Concomitant]
     Active Substance: FOLIC ACID
     Indication: Psoriatic arthropathy
     Dosage: UNK
     Route: 065
     Dates: start: 2018, end: 2019
  24. FOLIC ACID [Concomitant]
     Active Substance: FOLIC ACID
     Dosage: UNK (THRICE A WEEK)
     Route: 065
     Dates: start: 202007
  25. CITALOPRAM [Concomitant]
     Active Substance: CITALOPRAM HYDROBROMIDE
     Indication: Depression
     Dosage: 1 DOSAGE FORM, BID
     Route: 048
     Dates: start: 201911
  26. CREAM 91 [Concomitant]
     Indication: Psoriatic arthropathy
     Dosage: UNK UNK, QD ,(START DATE WAS 10 YEARS AGO)
     Route: 003
  27. LORAZEPAM [Concomitant]
     Active Substance: LORAZEPAM
     Indication: Depression
     Dosage: 0.2 MG, QD
     Route: 048
     Dates: start: 2015

REACTIONS (43)
  - Arthralgia [Not Recovered/Not Resolved]
  - Swelling [Not Recovered/Not Resolved]
  - Malaise [Not Recovered/Not Resolved]
  - Hypokinesia [Not Recovered/Not Resolved]
  - Headache [Recovering/Resolving]
  - Swelling face [Recovering/Resolving]
  - Neck pain [Recovering/Resolving]
  - Peripheral nerve infection [Recovering/Resolving]
  - Peripheral swelling [Not Recovered/Not Resolved]
  - Ear pain [Recovering/Resolving]
  - Trismus [Recovering/Resolving]
  - Neuralgia [Recovering/Resolving]
  - Abscess neck [Recovering/Resolving]
  - Joint swelling [Recovering/Resolving]
  - Dysphagia [Recovering/Resolving]
  - Peritonsillar abscess [Recovered/Resolved]
  - Abscess oral [Not Recovered/Not Resolved]
  - Dyspepsia [Not Recovered/Not Resolved]
  - Flatulence [Not Recovered/Not Resolved]
  - Dairy intolerance [Not Recovered/Not Resolved]
  - Fall [Recovered/Resolved]
  - Paraesthesia [Not Recovered/Not Resolved]
  - Sluggishness [Recovered/Resolved]
  - Nervousness [Unknown]
  - Anxiety [Unknown]
  - Abdominal discomfort [Not Recovered/Not Resolved]
  - Insomnia [Recovered/Resolved]
  - Pain [Recovered/Resolved]
  - Asthenia [Recovered/Resolved]
  - Limb discomfort [Recovered/Resolved]
  - Joint swelling [Recovered/Resolved]
  - Tremor [Recovered/Resolved]
  - Muscular weakness [Recovered/Resolved]
  - Swelling [Recovered/Resolved]
  - Spinal pain [Recovered/Resolved]
  - Bradykinesia [Recovered/Resolved]
  - Discomfort [Recovered/Resolved]
  - Arthralgia [Recovered/Resolved]
  - Bursitis [Recovering/Resolving]
  - Inflammation [Recovering/Resolving]
  - Pain in extremity [Recovering/Resolving]
  - Product dose omission issue [Unknown]
  - Therapeutic product effect incomplete [Recovering/Resolving]

NARRATIVE: CASE EVENT DATE: 20210417
